FAERS Safety Report 13038044 (Version 1)
Quarter: 2016Q4

REPORT INFORMATION
  Report Type: Spontaneous
  Country: US (occurrence: US)
  Receive Date: 20161213
  Receipt Date: 20161213
  Transmission Date: 20170207
  Serious: Yes (Disabling)
  Sender: FDA-Public Use
  Company Number: None

PATIENT
  Age: 68 Year
  Sex: Female
  Weight: 82.63 kg

DRUGS (1)
  1. E-Z-PAQUE [Suspect]
     Active Substance: BARIUM SULFATE
     Indication: X-RAY WITH CONTRAST
     Dosage: ?          QUANTITY:W ?WAS NO.? TO;?
     Route: 048

REACTIONS (3)
  - Confusional state [None]
  - Tinnitus [None]
  - Hallucination, auditory [None]

NARRATIVE: CASE EVENT DATE: 20161006
